FAERS Safety Report 9889636 (Version 3)
Quarter: 2014Q2

REPORT INFORMATION
  Report Type: Spontaneous
  Country: US (occurrence: US)
  Receive Date: 20140211
  Receipt Date: 20140526
  Transmission Date: 20141212
  Serious: Yes (Other)
  Sender: FDA-Public Use
  Company Number: US-UCBSA-111583

PATIENT
  Age: 52 Year
  Sex: Male
  Weight: 57.1 kg

DRUGS (8)
  1. VIMPAT [Suspect]
     Indication: CONVULSION
     Route: 048
     Dates: start: 201102, end: 2013
  2. VIMPAT [Suspect]
     Indication: CONVULSION
     Route: 048
     Dates: start: 2013
  3. ASA [Concomitant]
  4. LEVOTHYROXINE [Concomitant]
     Dosage: SINCE 8 TO 10 YEARS
  5. TEMAZEPAM [Concomitant]
     Dosage: PRN
  6. LOMOTIL [Concomitant]
     Indication: DIARRHOEA
     Dosage: 1 TO 2 PRN
  7. CALCIUM [Concomitant]
  8. DILANTIN [Concomitant]

REACTIONS (8)
  - Concussion [Unknown]
  - Pruritus generalised [Recovering/Resolving]
  - Calcinosis [Unknown]
  - Fall [Recovered/Resolved]
  - Amnesia [Not Recovered/Not Resolved]
  - Rib fracture [Recovered/Resolved]
  - Head injury [Recovered/Resolved]
  - Convulsion [Unknown]
